FAERS Safety Report 13871268 (Version 2)
Quarter: 2018Q3

REPORT INFORMATION
  Report Type: Spontaneous
  Country: US (occurrence: US)
  Receive Date: 20170816
  Receipt Date: 20180910
  Transmission Date: 20181010
  Serious: Yes (Other)
  Sender: FDA-Public Use
  Company Number: US-BIOVITRUM-2017US0670

PATIENT
  Age: 2 Year
  Sex: Male

DRUGS (13)
  1. IVIG [Concomitant]
     Active Substance: HUMAN IMMUNOGLOBULIN G
     Dates: start: 201412
  2. RITUXIMAB. [Concomitant]
     Active Substance: RITUXIMAB
     Dates: start: 201405, end: 201405
  3. ACTEMRA [Concomitant]
     Active Substance: TOCILIZUMAB
     Dates: start: 201309, end: 201404
  4. METHOTREXATE. [Concomitant]
     Active Substance: METHOTREXATE
     Route: 058
     Dates: start: 201305, end: 201404
  5. CYCLOSPORINE A [Concomitant]
     Active Substance: CYCLOSPORINE
     Dates: start: 201412, end: 201412
  6. KINERET [Suspect]
     Active Substance: ANAKINRA
     Indication: STILL^S DISEASE
     Dates: start: 201302, end: 201309
  7. CORTICOSTEROIDS [Concomitant]
     Active Substance: CORTICOSTEROID NOS
     Dates: start: 201302
  8. PREDNISONE. [Concomitant]
     Active Substance: PREDNISONE
  9. TACROLIMUS. [Concomitant]
     Active Substance: TACROLIMUS
     Dates: start: 20141023, end: 20141124
  10. KINERET [Suspect]
     Active Substance: ANAKINRA
     Dates: start: 201405, end: 201501
  11. IVIG [Concomitant]
     Active Substance: HUMAN IMMUNOGLOBULIN G
     Dates: start: 201405, end: 201405
  12. CYCLOPHOSPHAMIDE. [Concomitant]
     Active Substance: CYCLOPHOSPHAMIDE
     Dates: start: 201404, end: 201411
  13. CELLCEPT [Concomitant]
     Active Substance: MYCOPHENOLATE MOFETIL\MYCOPHENOLATE MOFETIL HYDROCHLORIDE
     Dates: start: 201412, end: 201505

REACTIONS (7)
  - Pneumonia lipoid [Unknown]
  - Interstitial lung disease [Unknown]
  - Antibody test positive [Unknown]
  - Clubbing [Unknown]
  - Alveolar proteinosis [Unknown]
  - Eosinophilia [Unknown]
  - Histiocytosis haematophagic [Unknown]

NARRATIVE: CASE EVENT DATE: 201404
